FAERS Safety Report 22102136 (Version 2)
Quarter: 2023Q1

REPORT INFORMATION
  Report Type: Report from Study
  Country: DE (occurrence: DE)
  Receive Date: 20230316
  Receipt Date: 20230327
  Transmission Date: 20230418
  Serious: Yes (Other)
  Sender: FDA-Public Use
  Company Number: DE-TEVA-2023-DE-2866060

PATIENT
  Age: 54 Year
  Sex: Male

DRUGS (6)
  1. FINGOLIMOD [Suspect]
     Active Substance: FINGOLIMOD
     Indication: Relapsing-remitting multiple sclerosis
     Route: 065
  2. TOZINAMERAN [Concomitant]
     Active Substance: TOZINAMERAN
     Indication: COVID-19 immunisation
     Route: 065
     Dates: start: 20210405
  3. TOZINAMERAN [Concomitant]
     Active Substance: TOZINAMERAN
     Route: 065
     Dates: start: 20210426
  4. TOZINAMERAN [Concomitant]
     Active Substance: TOZINAMERAN
     Route: 065
     Dates: start: 20210901
  5. CASIRIVIMAB\IMDEVIMAB [Concomitant]
     Active Substance: CASIRIVIMAB\IMDEVIMAB
     Indication: Prophylaxis
     Dosage: 600 MG EVERY 4 WEEKS
     Route: 041
     Dates: start: 20211217
  6. CASIRIVIMAB\IMDEVIMAB [Concomitant]
     Active Substance: CASIRIVIMAB\IMDEVIMAB
     Dosage: 300 MG EVERY 4 WEEKS
     Route: 041
     Dates: start: 20020114

REACTIONS (2)
  - Immunodeficiency [Unknown]
  - Vaccination failure [Unknown]
